FAERS Safety Report 7100183-9 (Version None)
Quarter: 2010Q4

REPORT INFORMATION
  Report Type: 
  Country: None (occurrence: None)
  Receive Date: 20101112
  Receipt Date: 20100812
  Transmission Date: 20110411
  Serious: No
  Sender: FDA-Public Use
  Company Number: A0877264A

PATIENT
  Age: 69 Year
  Sex: Female

DRUGS (1)
  1. COREG [Suspect]
     Route: 048

REACTIONS (2)
  - BEDRIDDEN [None]
  - OEDEMA PERIPHERAL [None]
